FAERS Safety Report 6343697-1 (Version None)
Quarter: 2009Q3

REPORT INFORMATION
  Report Type: 
  Country: None (occurrence: None)
  Receive Date: 20090908
  Receipt Date: 20090831
  Transmission Date: 20100115
  Serious: Yes (Congenital Anomaly)
  Sender: FDA-Public Use
  Company Number: A0756634A

PATIENT
  Sex: Male

DRUGS (15)
  1. PAXIL CR [Suspect]
     Indication: BIPOLAR DISORDER
     Dosage: 25MG TWICE PER DAY
     Dates: start: 20050301, end: 20051101
  2. PAXIL [Suspect]
     Indication: BIPOLAR DISORDER
     Dosage: 20MG PER DAY
     Dates: start: 20020401, end: 20051101
  3. METROGEL [Concomitant]
     Dates: start: 20050422
  4. PRENATE [Concomitant]
  5. IRON [Concomitant]
  6. BACTRIM [Concomitant]
     Dates: start: 20050201
  7. CRACK COCAINE [Concomitant]
  8. TETRAHYDROCANNABINOL [Concomitant]
  9. ALCOHOL [Concomitant]
  10. TOPAMAX [Concomitant]
     Dates: start: 20050201
  11. DEPAKOTE [Concomitant]
  12. LITHIUM [Concomitant]
  13. ZYPREXA [Concomitant]
  14. BENADRYL [Concomitant]
  15. CLINDAMYCIN [Concomitant]
     Dates: start: 20050901

REACTIONS (6)
  - ATRIAL SEPTAL DEFECT [None]
  - CARDIAC DISORDER [None]
  - DRUG EXPOSURE DURING PREGNANCY [None]
  - DYSMORPHISM [None]
  - ORAL DISORDER [None]
  - SPEECH DISORDER DEVELOPMENTAL [None]
